FAERS Safety Report 16006117 (Version 1)
Quarter: 2019Q1

REPORT INFORMATION
  Report Type: Report from Study
  Country: EG (occurrence: EG)
  Receive Date: 20190226
  Receipt Date: 20190226
  Transmission Date: 20190418
  Serious: Yes (Death)
  Sender: FDA-Public Use
  Company Number: EG-SA-2019SA051910

PATIENT
  Age: 63 Year
  Sex: Female

DRUGS (1)
  1. INSULIN GLARGINE [Suspect]
     Active Substance: INSULIN GLARGINE
     Indication: TYPE 2 DIABETES MELLITUS
     Dosage: 40 IU, QD
     Route: 058
     Dates: start: 20171028, end: 20180620

REACTIONS (1)
  - Angina pectoris [Fatal]

NARRATIVE: CASE EVENT DATE: 20180620
